FAERS Safety Report 12245910 (Version 1)
Quarter: 2016Q2

REPORT INFORMATION
  Report Type: Spontaneous
  Country: US (occurrence: US)
  Receive Date: 20160407
  Receipt Date: 20160407
  Transmission Date: 20160815
  Serious: No
  Sender: FDA-Public Use
  Company Number: US-WATSON-2015-15507

PATIENT
  Sex: Female
  Weight: 66 kg

DRUGS (3)
  1. NORTRIPTYLINE HYDROCHLORIDE (WATSON LABORATORIES) [Suspect]
     Active Substance: NORTRIPTYLINE HYDROCHLORIDE
     Indication: NEURALGIA
  2. CELEBREX [Suspect]
     Active Substance: CELECOXIB
     Indication: NEURALGIA
     Dosage: 200 MG, BID
     Route: 048
     Dates: start: 201211
  3. CELECOXIB (WATSON LABORATORIES) [Suspect]
     Active Substance: CELECOXIB
     Indication: NEURALGIA
     Route: 065

REACTIONS (10)
  - Feeling abnormal [Unknown]
  - Back disorder [Unknown]
  - Impaired driving ability [Unknown]
  - Sleep disorder [Unknown]
  - Paraesthesia [Unknown]
  - Headache [Unknown]
  - Dry mouth [Unknown]
  - Oropharyngeal pain [Unknown]
  - Intervertebral disc protrusion [Unknown]
  - Neuralgia [Unknown]
